FAERS Safety Report 5683429-3 (Version None)
Quarter: 2008Q1

REPORT INFORMATION
  Report Type: 
  Country: None (occurrence: None)
  Receive Date: 20080326
  Receipt Date: 20080311
  Transmission Date: 20080703
  Serious: Yes (Disabling)
  Sender: FDA-Public Use
  Company Number: 2008S1004158

PATIENT
  Age: 31 Year
  Sex: Female

DRUGS (6)
  1. NIFEDIPINE [Suspect]
     Indication: INSOMNIA
     Dosage: 10 MG;
     Dates: start: 20040101
  2. AMITRIPTYLINE HCL [Suspect]
     Indication: DEPRESSION
     Dosage: 150 MG;
     Dates: end: 20080204
  3. CALCICHEW /00108001/ (CALCIUM CARBONATE) [Suspect]
     Indication: OSTEOPENIA
     Dates: start: 19980101
  4. MICROGYNON /00022701/ (EUGYNON /00022701/) [Suspect]
     Indication: CONTRACEPTION
     Dosage: 30 MG;
     Dates: start: 20040101
  5. PROVIGIL [Suspect]
     Indication: FATIGUE
     Dates: start: 20050201, end: 20050204
  6. PROVIGIL [Suspect]
     Indication: MULTIPLE SCLEROSIS
     Dates: start: 20050201, end: 20050204

REACTIONS (5)
  - ARTHRALGIA [None]
  - DRUG INTERACTION [None]
  - JOINT STIFFNESS [None]
  - LUPUS-LIKE SYNDROME [None]
  - RASH ERYTHEMATOUS [None]
